FAERS Safety Report 22113413 (Version 5)
Quarter: 2023Q2

REPORT INFORMATION
  Report Type: Spontaneous
  Country: DE (occurrence: DE)
  Receive Date: 20230320
  Receipt Date: 20230605
  Transmission Date: 20230721
  Serious: Yes (Hospitalization)
  Sender: FDA-Public Use
  Company Number: DE-SA-SAC20230302000473

PATIENT
  Age: 65 Year
  Sex: Female
  Weight: 44.5 kg

DRUGS (18)
  1. DEXAMETHASONE [Suspect]
     Active Substance: DEXAMETHASONE
     Indication: Plasma cell myeloma refractory
     Dosage: 20 MG, QD
     Route: 065
     Dates: start: 20230223, end: 20230223
  2. DEXAMETHASONE [Suspect]
     Active Substance: DEXAMETHASONE
     Dosage: 20 MG, OTHER
     Route: 065
     Dates: start: 20230302, end: 20230317
  3. DEXAMETHASONE [Suspect]
     Active Substance: DEXAMETHASONE
     Dosage: 20 MG, OTHER
     Route: 065
     Dates: start: 20230323, end: 20230414
  4. DEXAMETHASONE [Suspect]
     Active Substance: DEXAMETHASONE
     Dosage: 20 MG, OTHER
     Route: 065
     Dates: start: 20230427, end: 20230512
  5. ISATUXIMAB [Suspect]
     Active Substance: ISATUXIMAB
     Indication: Plasma cell myeloma refractory
     Dosage: 160 MG, QD
     Route: 065
     Dates: start: 20230223, end: 20230223
  6. ISATUXIMAB [Suspect]
     Active Substance: ISATUXIMAB
     Dosage: 160 MG, QD
     Route: 065
     Dates: start: 20230302, end: 20230309
  7. ISATUXIMAB [Suspect]
     Active Substance: ISATUXIMAB
     Dosage: 20 MG/KG, QW (10 MG/KG, BIW)
     Route: 065
     Dates: start: 20230323, end: 20230405
  8. ISATUXIMAB [Suspect]
     Active Substance: ISATUXIMAB
     Dosage: 20 MG/KG, QW (10 MG/KG, BIW)
     Route: 065
     Dates: start: 20230427, end: 20230511
  9. CARFILZOMIB [Suspect]
     Active Substance: CARFILZOMIB
     Indication: Plasma cell myeloma refractory
     Dosage: 20 MG/M2, QD
     Route: 065
     Dates: start: 20230223, end: 20230223
  10. CARFILZOMIB [Suspect]
     Active Substance: CARFILZOMIB
     Dosage: 20 MG/M2, QD
     Route: 065
     Dates: start: 20230302, end: 20230303
  11. CARFILZOMIB [Suspect]
     Active Substance: CARFILZOMIB
     Dosage: 56 MG/M2, QD
     Route: 065
     Dates: start: 20230315, end: 20230316
  12. CARFILZOMIB [Suspect]
     Active Substance: CARFILZOMIB
     Dosage: 56 MG/M2, QD
     Route: 065
     Dates: start: 20230323, end: 20230406
  13. CARFILZOMIB [Suspect]
     Active Substance: CARFILZOMIB
     Dosage: 56 MG/M2, QD
     Route: 065
     Dates: start: 20230427, end: 20230512
  14. NOVALGIN [Concomitant]
     Indication: Cancer pain
     Dosage: UNK
     Route: 065
     Dates: start: 202301
  15. ACYCLOVIR [Concomitant]
     Active Substance: ACYCLOVIR
     Indication: Infection prophylaxis
     Dosage: UNK
     Route: 065
     Dates: start: 20230221
  16. MAGNESIUM [Concomitant]
     Active Substance: MAGNESIUM
     Indication: Paraesthesia
     Dosage: UNK
     Route: 065
     Dates: start: 202301
  17. CLEMASTINE [Concomitant]
     Active Substance: CLEMASTINE
     Indication: Product used for unknown indication
     Dosage: UNK UNK, QCY
     Route: 065
     Dates: start: 20230223, end: 20230511
  18. ACETAMINOPHEN [Concomitant]
     Active Substance: ACETAMINOPHEN
     Indication: Product used for unknown indication
     Dosage: UNK UNK, QCY
     Route: 065
     Dates: start: 20230223, end: 20230511

REACTIONS (6)
  - Infusion related reaction [Recovered/Resolved]
  - Ulcerative keratitis [Recovered/Resolved]
  - Syncope [Recovered/Resolved]
  - Leukopenia [Not Recovered/Not Resolved]
  - Thrombocytopenia [Not Recovered/Not Resolved]
  - Anaemia [Not Recovered/Not Resolved]

NARRATIVE: CASE EVENT DATE: 20230223
